FAERS Safety Report 7461384-3 (Version None)
Quarter: 2011Q2

REPORT INFORMATION
  Report Type: 
  Country: None (occurrence: None)
  Receive Date: 20110506
  Receipt Date: 20110425
  Transmission Date: 20111010
  Serious: Yes (Death, Hospitalization, Other)
  Sender: FDA-Public Use
  Company Number: US-CELGENEUS-163-21880-11032981

PATIENT
  Sex: Male
  Weight: 66.225 kg

DRUGS (11)
  1. COLACE [Concomitant]
     Dosage: 1 CAPSULE
     Route: 048
     Dates: start: 20110314
  2. AMIODARONE [Concomitant]
     Dosage: 200 MILLIGRAM
     Route: 048
  3. FUROSEMIDE [Concomitant]
     Dosage: 20 MILLIGRAM
     Route: 048
  4. MULTI-VITAMINS [Concomitant]
     Route: 048
  5. REVLIMID [Suspect]
     Indication: MULTIPLE MYELOMA
     Dosage: 25 MILLIGRAM
     Route: 048
     Dates: start: 20100916
  6. DUONEB [Concomitant]
     Dosage: 3 MILLILITER
     Route: 055
  7. REVLIMID [Suspect]
     Dosage: 10 MILLIGRAM
     Route: 048
     Dates: start: 20101101, end: 20110201
  8. DEXAMETHASONE [Concomitant]
     Dosage: 4 MILLIGRAM
     Route: 048
  9. MOMETASONE FUROATE [Concomitant]
     Dosage: 50 MICROGRAM
     Route: 065
  10. ASPIRIN [Concomitant]
     Dosage: 325 MILLIGRAM
     Route: 048
  11. FAMOTIDINE [Concomitant]
     Dosage: 20 MILLIGRAM
     Route: 048

REACTIONS (3)
  - ATRIAL FIBRILLATION [None]
  - PERICARDITIS [None]
  - MULTIPLE MYELOMA [None]
